FAERS Safety Report 6913755-9 (Version None)
Quarter: 2010Q3

REPORT INFORMATION
  Report Type: 
  Country: None (occurrence: None)
  Receive Date: 20100809
  Receipt Date: 20080429
  Transmission Date: 20110219
  Serious: No
  Sender: FDA-Public Use
  Company Number: US-PFIZER INC-2008038016

PATIENT
  Age: 70 Year
  Sex: Female
  Weight: 88 kg

DRUGS (2)
  1. LIPITOR [Suspect]
  2. MERIDIA [Suspect]
     Indication: WEIGHT DECREASED

REACTIONS (1)
  - LIVER FUNCTION TEST ABNORMAL [None]
